FAERS Safety Report 11470416 (Version 2)
Quarter: 2015Q3

REPORT INFORMATION
  Report Type: Spontaneous
  Country: US (occurrence: US)
  Receive Date: 20150903
  Receipt Date: 20150903
  Transmission Date: 20151125
  Serious: No
  Sender: FDA-Public Use
  Company Number: US-ELI_LILLY_AND_COMPANY-US201112000833

PATIENT
  Age: 67 Year
  Sex: Female

DRUGS (2)
  1. CYMBALTA [Suspect]
     Active Substance: DULOXETINE HYDROCHLORIDE
     Dosage: 180 MG, QD
     Dates: start: 20111118
  2. CYMBALTA [Suspect]
     Active Substance: DULOXETINE HYDROCHLORIDE
     Indication: DEPRESSION
     Dosage: 120 MG, QD
     Dates: start: 2008, end: 20111117

REACTIONS (4)
  - Musculoskeletal stiffness [Recovering/Resolving]
  - Overdose [Not Recovered/Not Resolved]
  - Arthralgia [Recovering/Resolving]
  - Intentional product misuse [Not Recovered/Not Resolved]

NARRATIVE: CASE EVENT DATE: 20111118
